FAERS Safety Report 8924487 (Version 1)
Quarter: 2012Q4

REPORT INFORMATION
  Report Type: Spontaneous
  Country: US (occurrence: None)
  Receive Date: 20121121
  Receipt Date: 20121121
  Transmission Date: 20130627
  Serious: Yes (Hospitalization)
  Sender: FDA-Public Use
  Company Number: None

PATIENT
  Age: 80 Year
  Sex: Female

DRUGS (7)
  1. LETAIRIS [Suspect]
     Indication: PULMONARY HYPERTENSION
     Dosage: 5mg QD orally
     Route: 048
     Dates: start: 20121011, end: 20121024
  2. REVATIO [Concomitant]
  3. DIGOXIN [Concomitant]
  4. COUMADIN [Concomitant]
  5. PLAVIX [Concomitant]
  6. TENORMIN [Concomitant]
  7. HYDROCHLOROTHIAZIDE [Concomitant]

REACTIONS (3)
  - Chest discomfort [None]
  - Myocardial ischaemia [None]
  - Coronary artery disease [None]
